FAERS Safety Report 24173629 (Version 1)
Quarter: 2024Q3

REPORT INFORMATION
  Report Type: Spontaneous
  Country: IT (occurrence: IT)
  Receive Date: 20240805
  Receipt Date: 20240805
  Transmission Date: 20241016
  Serious: Yes (Other)
  Sender: BRISTOL MYERS SQUIBB
  Company Number: None

PATIENT
  Age: 63 Year
  Sex: Female

DRUGS (1)
  1. OPDIVO [Suspect]
     Active Substance: NIVOLUMAB
     Indication: Renal cancer
     Dates: start: 20240725, end: 20240725

REACTIONS (7)
  - Blood thyroid stimulating hormone increased [Recovered/Resolved]
  - Flushing [Recovered/Resolved]
  - Feeling cold [Recovered/Resolved]
  - Sense of oppression [Recovered/Resolved]
  - Abdominal pain [Recovered/Resolved]
  - Bronchostenosis [Recovered/Resolved]
  - Tremor [Recovered/Resolved]

NARRATIVE: CASE EVENT DATE: 20240725
